FAERS Safety Report 19988707 (Version 1)
Quarter: 2021Q4

REPORT INFORMATION
  Report Type: Other
  Country: GB (occurrence: GB)
  Receive Date: 20211024
  Receipt Date: 20211024
  Transmission Date: 20220303
  Serious: Yes (Other)
  Sender: FDA-Public Use
  Company Number: None

PATIENT
  Age: 76 Year
  Sex: Female
  Weight: 92 kg

DRUGS (15)
  1. SERTRALINE [Suspect]
     Active Substance: SERTRALINE HYDROCHLORIDE
     Indication: Product used for unknown indication
     Dosage: 50 MILLIGRAM, QD (IN THE MORNING ONCE MIRTAZAPINE)
     Route: 048
     Dates: start: 20210917
  2. ALENDRONIC ACID [Concomitant]
     Active Substance: ALENDRONIC ACID
     Indication: Product used for unknown indication
     Dosage: 1 DOSAGE FORM (WEEK)
     Route: 065
     Dates: start: 20190926
  3. AMLODIPINE [Concomitant]
     Active Substance: AMLODIPINE BESYLATE
     Indication: Product used for unknown indication
     Dosage: 1 DOSAGE FORM, QD
     Route: 065
     Dates: start: 20190926
  4. AMOXICILLIN [Concomitant]
     Active Substance: AMOXICILLIN
     Indication: Chronic obstructive pulmonary disease
     Dosage: UNK
     Route: 065
     Dates: start: 20190926, end: 20210922
  5. BRICANYL [Concomitant]
     Active Substance: TERBUTALINE SULFATE
     Indication: Dyspnoea
     Dosage: INHALE 1 DOSE AS NEEDED FOR BREATHLESSNESS OR W...
     Route: 055
     Dates: start: 20191028
  6. DOXYCYCLINE [Concomitant]
     Active Substance: DOXYCYCLINE
     Indication: Product used for unknown indication
     Dosage: 1 DOSAGE FORM, QD (TWO NOW THEN ONE DAILY WITH FOOD)
     Route: 065
     Dates: start: 20211005
  7. ESOMEPRAZOLE. [Concomitant]
     Active Substance: ESOMEPRAZOLE MAGNESIUM
     Indication: Product used for unknown indication
     Dosage: 2 DOSAGE FORM, QD
     Route: 065
     Dates: start: 20191028
  8. FUROSEMIDE [Concomitant]
     Active Substance: FUROSEMIDE
     Indication: Product used for unknown indication
     Dosage: 1 DOSAGE FORM, QD (EACH MORNING)
     Route: 065
     Dates: start: 20191216
  9. POTASSIUM BICARBONATE\SODIUM ALGINATE [Concomitant]
     Active Substance: POTASSIUM BICARBONATE\SODIUM ALGINATE
     Indication: Product used for unknown indication
     Dosage: 4 DOSAGE FORM, QD (5ML OR 10ML)
     Route: 065
     Dates: start: 20191028
  10. POLYETHYLENE GLYCOL 3350\POTASSIUM CHLORIDE\SODIUM BICARBONATE\SODIUM [Concomitant]
     Active Substance: POLYETHYLENE GLYCOL 3350\POTASSIUM CHLORIDE\SODIUM BICARBONATE\SODIUM CHLORIDE
     Indication: Product used for unknown indication
     Dosage: UNK, PRN (1-2 SACHETS TO BE TAKEN WHEN REQUIRED AS DIRECTED)
     Route: 065
     Dates: start: 20200207
  11. MIRTAZAPINE [Concomitant]
     Active Substance: MIRTAZAPINE
     Indication: Product used for unknown indication
     Dosage: 30 MILLIGRAM, QD (REDUCING DOSE. 30MG AT NIGHT FOR 1 WEEK THEN 15)
     Route: 065
     Dates: start: 20191028
  12. PREDNISOLONE [Concomitant]
     Active Substance: PREDNISOLONE
     Indication: Product used for unknown indication
     Dosage: TAKE 30MG DAILY (6 TABLETS) FOR 5 DAYS
     Route: 065
     Dates: start: 20191028
  13. ALBUTEROL [Concomitant]
     Active Substance: ALBUTEROL
     Indication: Product used for unknown indication
     Dosage: 3 DOSAGE FORM, QD (3-4 TIMES/DAY)
     Route: 055
     Dates: start: 20200503
  14. BECLOMETHASONE DIPROPIONATE\FORMOTEROL FUMARATE\GLYCOPYRROLATE [Concomitant]
     Active Substance: BECLOMETHASONE DIPROPIONATE\FORMOTEROL FUMARATE\GLYCOPYRROLATE
     Indication: Product used for unknown indication
     Dosage: 4 DOSAGE FORM, QD
     Route: 065
     Dates: start: 20200525
  15. ZOPICLONE [Concomitant]
     Active Substance: ZOPICLONE
     Indication: Product used for unknown indication
     Dosage: 1 DOSAGE FORM, QD (TAKE ONE AT NIGHT USE SPARINGLY { NOT TO BE USE)
     Route: 065
     Dates: start: 20210917

REACTIONS (3)
  - Dizziness [Recovering/Resolving]
  - Diarrhoea [Recovering/Resolving]
  - Syncope [Recovering/Resolving]

NARRATIVE: CASE EVENT DATE: 20211007
